FAERS Safety Report 21590644 (Version 9)
Quarter: 2024Q3

REPORT INFORMATION
  Report Type: Report from Study
  Country: US (occurrence: US)
  Receive Date: 20221114
  Receipt Date: 20240917
  Transmission Date: 20241017
  Serious: Yes (Other)
  Sender: TAKEDA
  Company Number: US-TAKEDA-2022TUS031063

PATIENT
  Age: 34 Year
  Sex: Male
  Weight: 68 kg

DRUGS (16)
  1. HUMAN IMMUNOGLOBULIN G [Suspect]
     Active Substance: HUMAN IMMUNOGLOBULIN G
     Indication: Autonomic neuropathy
     Dosage: UNK UNK, 1/WEEK
     Route: 042
     Dates: start: 20220301
  2. HUMAN IMMUNOGLOBULIN G [Suspect]
     Active Substance: HUMAN IMMUNOGLOBULIN G
     Dosage: 400 MILLIGRAM, 1/WEEK
     Route: 042
  3. HUMAN IMMUNOGLOBULIN G [Suspect]
     Active Substance: HUMAN IMMUNOGLOBULIN G
     Dosage: 400 MILLIGRAM/KILOGRAM, 1/WEEK
     Route: 042
  4. BENADRYL [Suspect]
     Active Substance: DIPHENHYDRAMINE HYDROCHLORIDE
     Indication: Product used for unknown indication
     Dosage: UNK
     Route: 065
  5. ESOMEPRAZOLE MAGNESIUM [Concomitant]
     Active Substance: ESOMEPRAZOLE MAGNESIUM
     Dosage: UNK
     Route: 065
  6. SUCRALFATE [Concomitant]
     Active Substance: SUCRALFATE
     Dosage: UNK
     Route: 065
  7. EPINEPHRINE [Concomitant]
     Active Substance: EPINEPHRINE
     Dosage: UNK
     Route: 065
  8. SODIUM CHLORIDE [Concomitant]
     Active Substance: SODIUM CHLORIDE
     Dosage: UNK
     Route: 065
  9. ACETAMINOPHEN [Concomitant]
     Active Substance: ACETAMINOPHEN
     Dosage: UNK
     Route: 065
  10. SODIUM CHLORIDE [Concomitant]
     Active Substance: SODIUM CHLORIDE
     Dosage: UNK
     Route: 065
  11. LINZESS [Concomitant]
     Active Substance: LINACLOTIDE
     Dosage: UNK
     Route: 065
  12. Lmx [Concomitant]
     Dosage: UNK
     Route: 065
  13. TAMSULOSIN HYDROCHLORIDE [Concomitant]
     Active Substance: TAMSULOSIN HYDROCHLORIDE
     Dosage: UNK
     Route: 065
  14. FLOMAX [Concomitant]
     Active Substance: TAMSULOSIN HYDROCHLORIDE
     Dosage: UNK
     Route: 065
  15. DIPHENHYDRAMINE HYDROCHLORIDE [Concomitant]
     Active Substance: DIPHENHYDRAMINE HYDROCHLORIDE
     Dosage: UNK
     Route: 065
  16. LIDOCAINE [Concomitant]
     Active Substance: LIDOCAINE
     Dosage: UNK
     Route: 065

REACTIONS (11)
  - Haematochezia [Unknown]
  - Rectal tenesmus [Unknown]
  - Ligament sprain [Unknown]
  - Product dose omission issue [Unknown]
  - Off label use [Unknown]
  - Rhinorrhoea [Unknown]
  - Dyspnoea [Unknown]
  - Abdominal pain [Unknown]
  - Diarrhoea [Unknown]
  - Nausea [Unknown]
  - Hypersensitivity [Unknown]

NARRATIVE: CASE EVENT DATE: 20220301
